FAERS Safety Report 26109972 (Version 1)
Quarter: 2025Q4

REPORT INFORMATION
  Report Type: Spontaneous
  Country: JP (occurrence: JP)
  Receive Date: 20251201
  Receipt Date: 20251201
  Transmission Date: 20260118
  Serious: Yes (Other)
  Sender: BRISTOL-MYERS SQUIBB COMPANY
  Company Number: JP-BRISTOL-MYERS SQUIBB COMPANY-2025-160774

PATIENT
  Age: 63 Year
  Sex: Female

DRUGS (2)
  1. IPILIMUMAB [Suspect]
     Active Substance: IPILIMUMAB
     Indication: Malignant melanoma
  2. NIVOLUMAB [Suspect]
     Active Substance: NIVOLUMAB
     Indication: Malignant melanoma

REACTIONS (6)
  - Immune-mediated myocarditis [Unknown]
  - Immune-mediated hepatic disorder [Unknown]
  - Immune-mediated dermatitis [Unknown]
  - Immune-mediated uveitis [Unknown]
  - Granuloma [Unknown]
  - Vogt-Koyanagi-Harada disease [Unknown]
